FAERS Safety Report 21699845 (Version 1)
Quarter: 2022Q4

REPORT INFORMATION
  Report Type: Spontaneous
  Country: BE (occurrence: BE)
  Receive Date: 20221208
  Receipt Date: 20221208
  Transmission Date: 20230113
  Serious: Yes (Hospitalization, Other)
  Sender: FDA-Public Use
  Company Number: None

PATIENT
  Age: 31 Year
  Sex: Female
  Weight: 60 kg

DRUGS (11)
  1. DOCETAXEL [Suspect]
     Active Substance: DOCETAXEL
     Indication: Breast cancer
     Dates: end: 20220505
  2. Decapeptyl [Concomitant]
     Dosage: STRENGTH:3.75MG S.R, 1X/ 4 WEEKS IM, LAST RECEIVED ON 25-APR-2022
  3. DEXAMETHASONE [Concomitant]
     Active Substance: DEXAMETHASONE
     Dosage: STRENGTH: 8MG, 1 TABLET 12H AND 6H BEFORE CHEMO AND 1 TABLET 12H, 24H AND 36H AFTER CHEMO
  4. IBUPROFEN [Concomitant]
     Active Substance: IBUPROFEN
     Dosage: STRENGTH: 600 MG, DAILY 3X/DAY (07H - 15H - 23H)
  5. IMODIUM [Concomitant]
     Active Substance: LOPERAMIDE HYDROCHLORIDE
     Indication: Diarrhoea
     Dosage: STRENGTH:  2 MG, INSTANT, IN CASE OF DIARRHEA TILL 8 CO / DAY
  6. ALIZAPRIDE HYDROCHLORIDE [Concomitant]
     Active Substance: ALIZAPRIDE HYDROCHLORIDE
     Indication: Nausea
     Dosage: STRENGTH: 50 MG, UNTIL 6 CO / DAY IN CASE OF NAUSEA
  7. MOVICOL [Concomitant]
     Active Substance: POLYETHYLENE GLYCOL 3350\POTASSIUM CHLORIDE\SODIUM BICARBONATE\SODIUM CHLORIDE
     Indication: Constipation
     Dosage: STRENGTH: 13.8 G SACHET, POWDER FOR ORAL SOLUTION, 2 X / DAY 1 SACHET, IN CASE OF CONSTIPATION
  8. ACETAMINOPHEN [Concomitant]
     Active Substance: ACETAMINOPHEN
     Indication: Pain
     Dosage: STRENGTH: 1000MG, DAILY EVERY 6H IN CASE OF PAIN
  9. ZOLPIDEM [Concomitant]
     Active Substance: ZOLPIDEM TARTRATE
     Dosage: STRENGTH: 10 MG, EVENING
  10. XANAX [Concomitant]
     Active Substance: ALPRAZOLAM
     Indication: Insomnia
     Dosage: STRENGTH: 0.5MG, DAILY EVERY 6H IN CASE OF UNREST OR SLEEPLESSNESS
  11. IBUPROFEN [Concomitant]
     Active Substance: IBUPROFEN
     Indication: Pain
     Dosage: STRENGTH: 400 MG, EVERY 8H IN CASE OF PAIN UNADEQUATELY CONTROLLED WITH PARACETAMOL

REACTIONS (5)
  - Dyspnoea [Recovered/Resolved]
  - Throat irritation [Recovered/Resolved]
  - Chest discomfort [Recovered/Resolved]
  - Syncope [Recovered/Resolved]
  - Hypersensitivity [Recovered/Resolved]

NARRATIVE: CASE EVENT DATE: 20220505
